FAERS Safety Report 6242898-0 (Version None)
Quarter: 2009Q2

REPORT INFORMATION
  Report Type: 
  Country: None (occurrence: None)
  Receive Date: 20090624
  Receipt Date: 20090615
  Transmission Date: 20091009
  Serious: Yes (Other)
  Sender: FDA-Public Use
  Company Number: US-BAYER-200912150NA

PATIENT
  Age: 22 Year
  Sex: Female

DRUGS (1)
  1. MIRENA [Suspect]
     Indication: GENITAL HAEMORRHAGE
     Dosage: CONTINUOUS
     Route: 015

REACTIONS (6)
  - ADNEXA UTERI PAIN [None]
  - DEFAECATION URGENCY [None]
  - IUD MIGRATION [None]
  - NAUSEA [None]
  - RENAL FUSION ANOMALY [None]
  - VAGINAL DISCHARGE [None]
